FAERS Safety Report 7792610-9 (Version None)
Quarter: 2011Q4

REPORT INFORMATION
  Report Type: 
  Country: None (occurrence: None)
  Receive Date: 20111003
  Receipt Date: 20110923
  Transmission Date: 20120403
  Serious: Yes (Other)
  Sender: FDA-Public Use
  Company Number: DE-ASTRAZENECA-2011SE57542

PATIENT
  Age: 63 Year
  Sex: Female
  Weight: 85 kg

DRUGS (4)
  1. VALPROIC ACID [Suspect]
     Route: 048
  2. SEROQUEL [Suspect]
     Route: 048
  3. VENLAFAXINE HCL [Suspect]
     Route: 048
  4. MIRTAZAPINE [Suspect]
     Route: 048

REACTIONS (1)
  - HERPES OPHTHALMIC [None]
